FAERS Safety Report 5427309-7 (Version None)
Quarter: 2007Q3

REPORT INFORMATION
  Report Type: 
  Country: None (occurrence: None)
  Receive Date: 20070823
  Receipt Date: 20070823
  Transmission Date: 20080115
  Serious: No
  Sender: FDA-Public Use
  Company Number: None

PATIENT
  Age: 7 Year
  Sex: Male

DRUGS (1)
  1. RITALIN [Suspect]
     Dosage: TABLET

REACTIONS (4)
  - MEDICATION ERROR [None]
  - MOOD ALTERED [None]
  - SPEECH DISORDER [None]
  - WRONG DRUG ADMINISTERED [None]
